FAERS Safety Report 24303167 (Version 1)
Quarter: 2024Q3

REPORT INFORMATION
  Report Type: Spontaneous
  Country: US (occurrence: None)
  Receive Date: 20240909
  Receipt Date: 20240909
  Transmission Date: 20241017
  Serious: Yes (Hospitalization, Disabling)
  Sender: Public
  Company Number: None

PATIENT
  Age: 78 Year
  Sex: Male
  Weight: 105.75 kg

DRUGS (1)
  1. DUPIXENT [Suspect]
     Active Substance: DUPILUMAB
     Indication: Asthma
     Dosage: 1 INJECTION EVERY 14 DAYS SUBCUTANEOUS
     Route: 058
     Dates: start: 20240708, end: 20240722

REACTIONS (5)
  - Groin pain [None]
  - Neck pain [None]
  - Nonspecific reaction [None]
  - Asthenia [None]
  - Movement disorder [None]

NARRATIVE: CASE EVENT DATE: 20240722
